FAERS Safety Report 9418901 (Version 1)
Quarter: 2013Q3

REPORT INFORMATION
  Report Type: Spontaneous
  Country: GB (occurrence: GB)
  Receive Date: 20130725
  Receipt Date: 20130725
  Transmission Date: 20140515
  Serious: Yes (Hospitalization)
  Sender: FDA-Public Use
  Company Number: GB-ROCHE-1252758

PATIENT
  Age: 72 Year
  Sex: Male

DRUGS (7)
  1. MABTHERA [Suspect]
     Indication: RHEUMATOID ARTHRITIS
     Route: 042
     Dates: start: 20130325, end: 20130408
  2. ADCAL-D3 [Concomitant]
  3. LOSARTAN [Concomitant]
  4. METFORMIN [Concomitant]
  5. OMEPRAZOLE [Concomitant]
  6. PARACETAMOL [Concomitant]
  7. PREDNISOLONE [Concomitant]

REACTIONS (5)
  - Confusional state [Unknown]
  - Fall [Unknown]
  - Neutropenia [Recovered/Resolved with Sequelae]
  - Neutropenic sepsis [Unknown]
  - Pyrexia [Unknown]
